FAERS Safety Report 4896055-0 (Version None)
Quarter: 2005Q4

REPORT INFORMATION
  Report Type: 
  Country: None (occurrence: None)
  Receive Date: 20051220
  Receipt Date: 20050728
  Transmission Date: 20060501
  Serious: Yes (Other)
  Sender: FDA-Public Use
  Company Number: US127392

PATIENT
  Age: 30 Year
  Sex: Female

DRUGS (3)
  1. ENBREL [Suspect]
     Indication: PSORIASIS
     Dosage: 50 MG, 1 IN 1 WEEKS
     Dates: start: 20041101
  2. THYROID TAB [Concomitant]
  3. MEDROXYPROGESTERONE ACETATE [Concomitant]

REACTIONS (2)
  - ARTHRITIS [None]
  - CUTANEOUS LUPUS ERYTHEMATOSUS [None]
